FAERS Safety Report 16328320 (Version 2)
Quarter: 2019Q3

REPORT INFORMATION
  Report Type: Spontaneous
  Country: MT (occurrence: MT)
  Receive Date: 20190518
  Receipt Date: 20190908
  Transmission Date: 20191004
  Serious: Yes (Hospitalization, Other)
  Sender: FDA-Public Use
  Company Number: MT-AUROBINDO-AUR-APL-2019-028010

PATIENT

DRUGS (9)
  1. OMEPRAZOLE. [Interacting]
     Active Substance: OMEPRAZOLE
     Dosage: 20 MILLIGRAM, TWO TIMES A DAY
     Route: 065
  2. WARFARIN [Suspect]
     Active Substance: WARFARIN
     Indication: HEART RATE ABNORMAL
     Dosage: UNK
     Route: 065
  3. AMOXICILLIN. [Suspect]
     Active Substance: AMOXICILLIN
     Indication: HELICOBACTER TEST POSITIVE
     Dosage: 1 GRAM, TWO TIMES A DAY
     Route: 065
  4. AMOXICILLIN. [Suspect]
     Active Substance: AMOXICILLIN
     Indication: HELICOBACTER INFECTION
  5. CLARITHROMYCIN. [Suspect]
     Active Substance: CLARITHROMYCIN
     Indication: HELICOBACTER TEST POSITIVE
     Dosage: 500 MILLIGRAM, TWO TIMES A DAY
     Route: 065
  6. OMEPRAZOLE. [Interacting]
     Active Substance: OMEPRAZOLE
     Indication: HELICOBACTER INFECTION
     Dosage: 20 MILLIGRAM, ONCE A DAY
     Route: 065
  7. CLARITHROMYCIN. [Suspect]
     Active Substance: CLARITHROMYCIN
     Indication: HELICOBACTER INFECTION
  8. DIGOXIN. [Suspect]
     Active Substance: DIGOXIN
     Indication: HEART RATE
     Dosage: 0.13 MILLIGRAM, ONCE A DAY
     Route: 065
  9. DIGOXIN. [Suspect]
     Active Substance: DIGOXIN
     Indication: HEART RATE ABNORMAL

REACTIONS (18)
  - Drug interaction [Unknown]
  - Hyperkalaemia [Recovered/Resolved]
  - Toxicity to various agents [Recovered/Resolved]
  - Abdominal tenderness [Unknown]
  - Vision blurred [Unknown]
  - Supraventricular tachycardia [Unknown]
  - Cardioactive drug level increased [Unknown]
  - Epigastric discomfort [Unknown]
  - Hyperhidrosis [Unknown]
  - Electrocardiogram ST segment depression [Unknown]
  - Electrocardiogram abnormal [Unknown]
  - Bradycardia [Unknown]
  - Acute kidney injury [Unknown]
  - Bradyarrhythmia [Unknown]
  - Dizziness [Unknown]
  - Nausea [Unknown]
  - Blood creatinine increased [Recovering/Resolving]
  - Ventricular tachycardia [Unknown]
